FAERS Safety Report 7180343-1 (Version None)
Quarter: 2010Q4

REPORT INFORMATION
  Report Type: 
  Country: None (occurrence: None)
  Receive Date: 20101221
  Receipt Date: 20101215
  Transmission Date: 20110411
  Serious: Yes (Hospitalization)
  Sender: FDA-Public Use
  Company Number: A0899948A

PATIENT
  Sex: Male

DRUGS (3)
  1. VOTRIENT [Suspect]
     Indication: RENAL CANCER METASTATIC
     Dosage: 400MG TWICE PER DAY
     Route: 048
     Dates: start: 20100901
  2. BLOOD PRESSURE MEDICATION [Suspect]
     Route: 065
  3. CARDIZEM [Concomitant]
     Route: 065

REACTIONS (1)
  - HYPOTENSION [None]
